FAERS Safety Report 14754393 (Version 1)
Quarter: 2018Q2

REPORT INFORMATION
  Report Type: Spontaneous
  Country: CA (occurrence: CA)
  Receive Date: 20180412
  Receipt Date: 20180412
  Transmission Date: 20180711
  Serious: Yes (Congenital Anomaly)
  Sender: FDA-Public Use
  Company Number: CA-TEVA-2018-CA-878709

PATIENT

DRUGS (1)
  1. LAMOTRIGINE. [Suspect]
     Active Substance: LAMOTRIGINE
     Route: 062

REACTIONS (8)
  - Congenital cyst [Unknown]
  - Encephalocele [Unknown]
  - Heart disease congenital [Unknown]
  - Limb malformation [Unknown]
  - Congenital scoliosis [Unknown]
  - Foetal exposure during pregnancy [Unknown]
  - Congenital musculoskeletal anomaly [Unknown]
  - Multiple congenital abnormalities [Unknown]
